FAERS Safety Report 6221792-5 (Version None)
Quarter: 2009Q2

REPORT INFORMATION
  Report Type: 
  Country: None (occurrence: None)
  Receive Date: 20090608
  Receipt Date: 20090602
  Transmission Date: 20091009
  Serious: Yes (Other)
  Sender: FDA-Public Use
  Company Number: 2009SP011343

PATIENT
  Age: 56 Year
  Sex: Female
  Weight: 69.4003 kg

DRUGS (1)
  1. CLARITIN-D 24 HOUR [Suspect]
     Indication: SNEEZING
     Dosage: 10 MG; ONCE; PO
     Route: 048
     Dates: start: 20090427

REACTIONS (5)
  - FEELING ABNORMAL [None]
  - MOOD ALTERED [None]
  - NEGATIVISM [None]
  - SUICIDAL IDEATION [None]
  - THINKING ABNORMAL [None]
